FAERS Safety Report 8398001-4 (Version None)
Quarter: 2012Q2

REPORT INFORMATION
  Report Type: 
  Country: None (occurrence: None)
  Receive Date: 20120531
  Receipt Date: 20120524
  Transmission Date: 20120825
  Serious: Yes (Hospitalization, Congenital Anomaly)
  Sender: FDA-Public Use
  Company Number: US-JNJFOC-20111104298

PATIENT
  Sex: Female
  Weight: 2.72 kg

DRUGS (21)
  1. TOPAMAX [Suspect]
     Indication: FOETAL EXPOSURE DURING PREGNANCY
     Route: 064
     Dates: start: 20030901, end: 20100521
  2. VITAMIN K TAB [Concomitant]
     Indication: FOETAL EXPOSURE DURING PREGNANCY
     Route: 064
  3. AMOXIL [Concomitant]
     Indication: FOETAL EXPOSURE DURING PREGNANCY
     Route: 064
  4. AUGMENTIN [Concomitant]
     Indication: FOETAL EXPOSURE DURING PREGNANCY
     Route: 064
  5. BICITRA [Concomitant]
     Indication: FOETAL EXPOSURE DURING PREGNANCY
     Route: 064
  6. ZITHROMAX [Concomitant]
     Indication: FOETAL EXPOSURE DURING PREGNANCY
     Route: 064
  7. PRIMACARE [Concomitant]
     Indication: FOETAL EXPOSURE DURING PREGNANCY
     Route: 064
  8. PHENERGAN [Concomitant]
     Indication: FOETAL EXPOSURE DURING PREGNANCY
     Route: 064
  9. ZANTAC [Concomitant]
     Indication: FOETAL EXPOSURE DURING PREGNANCY
     Route: 064
  10. TYLENOL [Concomitant]
     Indication: FOETAL EXPOSURE DURING PREGNANCY
     Route: 064
  11. GUAIFENESIN [Concomitant]
     Indication: FOETAL EXPOSURE DURING PREGNANCY
     Route: 064
  12. CIPROFLOXACIN [Concomitant]
     Indication: FOETAL EXPOSURE DURING PREGNANCY
     Route: 064
  13. CEFOTAXIME [Concomitant]
     Indication: FOETAL EXPOSURE DURING PREGNANCY
     Route: 064
  14. FOLIC ACID [Concomitant]
     Indication: FOETAL EXPOSURE DURING PREGNANCY
     Route: 064
  15. ANCEF [Concomitant]
     Indication: FOETAL EXPOSURE DURING PREGNANCY
     Route: 064
  16. CALCIUM [Concomitant]
     Indication: FOETAL EXPOSURE DURING PREGNANCY
     Route: 064
  17. PPI [Concomitant]
     Indication: FOETAL EXPOSURE DURING PREGNANCY
     Route: 064
  18. PEPCID [Concomitant]
     Indication: FOETAL EXPOSURE DURING PREGNANCY
     Route: 064
  19. REGLAN [Concomitant]
     Indication: FOETAL EXPOSURE DURING PREGNANCY
     Route: 064
  20. ATIVAN [Concomitant]
     Indication: FOETAL EXPOSURE DURING PREGNANCY
     Route: 064
  21. AMPICILLIN [Concomitant]
     Indication: FOETAL EXPOSURE DURING PREGNANCY
     Route: 064

REACTIONS (3)
  - CLEFT PALATE [None]
  - CLEFT LIP [None]
  - TACHYCARDIA FOETAL [None]
